FAERS Safety Report 25204393 (Version 1)
Quarter: 2025Q2

REPORT INFORMATION
  Report Type: Spontaneous
  Country: PL (occurrence: PL)
  Receive Date: 20250416
  Receipt Date: 20250416
  Transmission Date: 20250716
  Serious: Yes (Hospitalization)
  Sender: ROCHE
  Company Number: None

PATIENT
  Age: 73 Year
  Sex: Male
  Weight: 114 kg

DRUGS (6)
  1. OBINUTUZUMAB [Suspect]
     Active Substance: OBINUTUZUMAB
     Indication: Chronic lymphocytic leukaemia
     Route: 042
     Dates: start: 20200506, end: 20200507
  2. MILURIT 100 MG [Concomitant]
     Indication: Product used for unknown indication
     Dosage: THE DATE OF ADMINISTRATION WAS INDICATED AS THE CURRENT DAY.
     Route: 048
  3. Metocard 50 MG [Concomitant]
     Indication: Product used for unknown indication
     Dosage: THE DATE OF ADMINISTRATION WAS INDICATED AS THE CURRENT DAY
     Route: 048
  4. DIOVAN [Concomitant]
     Active Substance: VALSARTAN
     Indication: Product used for unknown indication
     Route: 048
  5. LERCAN 10 MG [Concomitant]
     Indication: Product used for unknown indication
     Route: 048
  6. Theospirex 300MG [Concomitant]
     Indication: Product used for unknown indication
     Dosage: THE DATE OF ADMINISTRATION WAS INDICATED AS THE CURRENT DAY.
     Route: 048

REACTIONS (3)
  - Tumour lysis syndrome [Recovered/Resolved with Sequelae]
  - Respiratory failure [Recovered/Resolved with Sequelae]
  - Renal failure [Recovered/Resolved with Sequelae]

NARRATIVE: CASE EVENT DATE: 20200508
